FAERS Safety Report 25755055 (Version 1)
Quarter: 2025Q3

REPORT INFORMATION
  Report Type: Spontaneous
  Country: US (occurrence: US)
  Receive Date: 20250903
  Receipt Date: 20250903
  Transmission Date: 20251021
  Serious: No
  Sender: TAKEDA
  Company Number: US-TAKEDA-2025TUS075165

PATIENT
  Age: 70 Year
  Sex: Female

DRUGS (1)
  1. ENTYVIO [Suspect]
     Active Substance: VEDOLIZUMAB
     Indication: Inflammatory bowel disease

REACTIONS (3)
  - Skin lesion [Unknown]
  - Faecal calprotectin increased [Unknown]
  - Myalgia [Unknown]
